FAERS Safety Report 10801011 (Version 2)
Quarter: 2015Q1

REPORT INFORMATION
  Report Type: Spontaneous
  Country: US (occurrence: US)
  Receive Date: 20150216
  Receipt Date: 20150216
  Transmission Date: 20150721
  Serious: Yes (Other)
  Sender: FDA-Public Use
  Company Number: US-ALLERGAN-1420242US

PATIENT
  Age: 65 Year
  Sex: Female

DRUGS (2)
  1. RESTASIS [Suspect]
     Active Substance: CYCLOSPORINE
     Indication: DRY EYE
     Dosage: 2 GTT ONE INSTILLATION
     Route: 047
     Dates: start: 20140402, end: 20140402
  2. TIMOLOL [Concomitant]
     Active Substance: TIMOLOL
     Indication: GLAUCOMA

REACTIONS (3)
  - Swollen tongue [Unknown]
  - Dyspnoea [Unknown]
  - Aphasia [Unknown]

NARRATIVE: CASE EVENT DATE: 20140402
